FAERS Safety Report 21974843 (Version 2)
Quarter: 2023Q1

REPORT INFORMATION
  Report Type: Spontaneous
  Country: CA (occurrence: CA)
  Receive Date: 20230209
  Receipt Date: 20230310
  Transmission Date: 20230418
  Serious: Yes (Other)
  Sender: FDA-Public Use
  Company Number: CA-TEVA-2023-CA-2852639

PATIENT
  Age: 52 Year
  Sex: Female

DRUGS (1)
  1. PREDNISONE [Suspect]
     Active Substance: PREDNISONE
     Indication: Rash
     Route: 048

REACTIONS (3)
  - Gastrointestinal candidiasis [Recovered/Resolved]
  - Viral infection [Unknown]
  - Respiratory failure [Unknown]
